FAERS Safety Report 11594675 (Version 1)
Quarter: 2015Q4

REPORT INFORMATION
  Report Type: Spontaneous
  Country: CA (occurrence: CA)
  Receive Date: 20151005
  Receipt Date: 20151005
  Transmission Date: 20160304
  Serious: Yes (Other)
  Sender: FDA-Public Use
  Company Number: PHHY2015CA118405

PATIENT
  Age: 6 Week

DRUGS (1)
  1. NADOLOL. [Suspect]
     Active Substance: NADOLOL
     Indication: HAEMANGIOMA
     Route: 048

REACTIONS (3)
  - Agitation [Unknown]
  - Diarrhoea [Unknown]
  - Vomiting [Unknown]
